FAERS Safety Report 9810648 (Version 1)
Quarter: 2014Q1

REPORT INFORMATION
  Report Type: Spontaneous
  Country: US (occurrence: US)
  Receive Date: 20140110
  Receipt Date: 20140110
  Transmission Date: 20141002
  Serious: Yes (Other)
  Sender: FDA-Public Use
  Company Number: US-SANOFI-AVENTIS-2013SA091458

PATIENT
  Age: 52 Year
  Sex: Female
  Weight: 58 kg

DRUGS (14)
  1. PLAVIX [Suspect]
     Route: 048
  2. ONGLYZA [Suspect]
     Indication: TYPE 1 DIABETES MELLITUS
     Route: 065
     Dates: start: 2007
  3. CLOPIDOGREL [Suspect]
     Route: 065
  4. ISOSORBIDE [Suspect]
     Route: 065
  5. DIGOXIN [Suspect]
     Route: 065
  6. CARVEDILOL [Suspect]
     Dosage: DOSE - 3.125
     Route: 065
  7. METFORMIN [Suspect]
     Route: 065
  8. GLIMEPIRIDE [Suspect]
     Route: 065
  9. JANUVIA [Concomitant]
  10. CILOSTAZOL [Concomitant]
     Route: 065
  11. PANTOPRAZOLE [Concomitant]
     Route: 065
  12. TRIAMTERENE [Concomitant]
     Dosage: DOSE - 37.5 - 25
     Route: 065
  13. FENOFIBRATE [Concomitant]
     Route: 065
  14. PRAVASTATIN [Concomitant]
     Route: 065

REACTIONS (6)
  - Myocardial infarction [Unknown]
  - Adverse event [Unknown]
  - Fear of death [Unknown]
  - Memory impairment [Unknown]
  - Weight decreased [Unknown]
  - Blood pressure decreased [Unknown]
